FAERS Safety Report 16121346 (Version 1)
Quarter: 2019Q1

REPORT INFORMATION
  Report Type: Spontaneous
  Country: US (occurrence: US)
  Receive Date: 20190327
  Receipt Date: 20190327
  Transmission Date: 20190418
  Serious: No
  Sender: FDA-Public Use
  Company Number: US-GLAXOSMITHKLINE-US2019051972

PATIENT
  Sex: Female

DRUGS (1)
  1. BENLYSTA [Suspect]
     Active Substance: BELIMUMAB
     Indication: SYSTEMIC LUPUS ERYTHEMATOSUS
     Dosage: UNK
     Route: 042
     Dates: start: 201711

REACTIONS (6)
  - Diarrhoea [Unknown]
  - Pain in extremity [Unknown]
  - Cough [Unknown]
  - Joint swelling [Unknown]
  - Hypertension [Unknown]
  - Bronchitis [Unknown]
